FAERS Safety Report 12415871 (Version 2)
Quarter: 2016Q2

REPORT INFORMATION
  Report Type: Report from Study
  Country: BE (occurrence: BE)
  Receive Date: 20160530
  Receipt Date: 20160614
  Transmission Date: 20160815
  Serious: Yes (Life-Threatening)
  Sender: FDA-Public Use
  Company Number: BE-ROCHE-1764989

PATIENT
  Age: 54 Year
  Sex: Female
  Weight: 65 kg

DRUGS (2)
  1. RITUXIMAB [Suspect]
     Active Substance: RITUXIMAB
     Indication: POST TRANSPLANT LYMPHOPROLIFERATIVE DISORDER
     Dosage: (FORM AS PER PROTOCOL)
     Route: 042
     Dates: start: 20130319, end: 20130319
  2. RITUXIMAB [Suspect]
     Active Substance: RITUXIMAB
     Route: 042
     Dates: start: 20130324, end: 20130324

REACTIONS (1)
  - Gastric haemorrhage [Recovered/Resolved]

NARRATIVE: CASE EVENT DATE: 20130330
